FAERS Safety Report 15544621 (Version 1)
Quarter: 2018Q4

REPORT INFORMATION
  Report Type: Spontaneous
  Country: US (occurrence: US)
  Receive Date: 20181024
  Receipt Date: 20181024
  Transmission Date: 20190205
  Serious: No
  Sender: FDA-Public Use
  Company Number: US-LUNDBECK-DKLU2055933

PATIENT
  Age: 24 Year
  Sex: Female

DRUGS (2)
  1. NORTHERA [Suspect]
     Active Substance: DROXIDOPA
     Indication: ORTHOSTATIC HYPOTENSION
  2. NORTHERA [Suspect]
     Active Substance: DROXIDOPA
     Indication: AUTONOMIC NEUROPATHY
     Dosage: SCHEDULE D AND TITRATING
     Route: 065
     Dates: start: 20181013

REACTIONS (4)
  - Confusional state [Unknown]
  - Nausea [Unknown]
  - Palpitations [Unknown]
  - Somnolence [Unknown]

NARRATIVE: CASE EVENT DATE: 201810
